FAERS Safety Report 10217548 (Version 1)
Quarter: 2014Q2

REPORT INFORMATION
  Report Type: Spontaneous
  Country: US (occurrence: US)
  Receive Date: 20140604
  Receipt Date: 20140604
  Transmission Date: 20141212
  Serious: No
  Sender: FDA-Public Use
  Company Number: US-009507513-1406USA001128

PATIENT
  Sex: Female
  Weight: 65.31 kg

DRUGS (2)
  1. IMPLANON [Suspect]
     Indication: CONTRACEPTION
     Dosage: 1 ROD/ 3 YEARS
     Route: 059
     Dates: start: 20110922
  2. IMITREX (SUMATRIPTAN) [Concomitant]
     Indication: HEADACHE
     Dosage: UNK
     Dates: start: 20140502

REACTIONS (2)
  - Hormone level abnormal [Unknown]
  - Abdominal pain upper [Unknown]
